FAERS Safety Report 4773585-3 (Version None)
Quarter: 2005Q3

REPORT INFORMATION
  Report Type: 
  Country: None (occurrence: None)
  Receive Date: 20050920
  Receipt Date: 20050817
  Transmission Date: 20060218
  Serious: No
  Sender: FDA-Public Use
  Company Number: US-BRISTOL-MYERS SQUIBB COMPANY-13082664

PATIENT
  Age: 38 Year
  Sex: Female
  Weight: 72 kg

DRUGS (2)
  1. BUSPAR [Suspect]
     Indication: IRRITABLE BOWEL SYNDROME
     Dosage: DURATION OF THERAPY:  24 TO 25 DAYS
  2. AVIANE-21 [Concomitant]

REACTIONS (2)
  - DIZZINESS [None]
  - INSOMNIA [None]
